FAERS Safety Report 26118671 (Version 2)
Quarter: 2025Q4

REPORT INFORMATION
  Report Type: Spontaneous
  Country: EU (occurrence: EU)
  Receive Date: 20251203
  Receipt Date: 20251224
  Transmission Date: 20260118
  Serious: No
  Sender: GE HEALTHCARE
  Company Number: EU-GE HEALTHCARE-2025CSU016238

PATIENT

DRUGS (1)
  1. CLARISCAN [Suspect]
     Active Substance: GADOTERATE MEGLUMINE
     Indication: Diagnostic procedure
     Dosage: UNK, TOTAL
     Route: 065

REACTIONS (2)
  - Product label issue [Recovered/Resolved]
  - No adverse event [Recovered/Resolved]
